FAERS Safety Report 9999722 (Version 2)
Quarter: 2014Q2

REPORT INFORMATION
  Report Type: Spontaneous
  Country: DK (occurrence: DK)
  Receive Date: 20140312
  Receipt Date: 20140620
  Transmission Date: 20141212
  Serious: Yes (Other)
  Sender: FDA-Public Use
  Company Number: DK-009507513-1403DNK002423

PATIENT
  Sex: Female
  Weight: 90 kg

DRUGS (1)
  1. IMPLANON [Suspect]
     Route: 059

REACTIONS (2)
  - Surgery [Unknown]
  - Medical device complication [Unknown]
